FAERS Safety Report 6609833-4 (Version None)
Quarter: 2010Q1

REPORT INFORMATION
  Report Type: 
  Country: None (occurrence: None)
  Receive Date: 20100302
  Receipt Date: 20100217
  Transmission Date: 20100710
  Serious: Yes (Other)
  Sender: FDA-Public Use
  Company Number: PHEH2010US02708

PATIENT
  Sex: Female

DRUGS (1)
  1. RECLAST [Suspect]
     Dosage: 5 MG YEARLY
     Route: 042

REACTIONS (4)
  - HYPERCALCAEMIA [None]
  - LYMPHOMA [None]
  - RENAL FAILURE [None]
  - RENAL IMPAIRMENT [None]
